FAERS Safety Report 6641291-6 (Version None)
Quarter: 2010Q1

REPORT INFORMATION
  Report Type: 
  Country: None (occurrence: None)
  Receive Date: 20100318
  Receipt Date: 20100309
  Transmission Date: 20100710
  Serious: Yes (Death, Life-Threatening, Hospitalization, Other)
  Sender: FDA-Public Use
  Company Number: FR-BAXTER-2010BH001789

PATIENT
  Age: 6 Year
  Sex: Male
  Weight: 24 kg

DRUGS (16)
  1. IFOSFAMIDE [Suspect]
     Indication: HODGKIN'S DISEASE
     Route: 065
     Dates: start: 20100114, end: 20100118
  2. UROMITEXAN BAXTER [Suspect]
     Indication: DRUG USE FOR UNKNOWN INDICATION
     Route: 065
     Dates: start: 20100114
  3. NAVELBINE [Suspect]
     Indication: HODGKIN'S DISEASE
     Route: 042
     Dates: start: 20100118, end: 20100118
  4. NAVELBINE [Suspect]
     Route: 042
     Dates: start: 20100114, end: 20100114
  5. MITOGUAZONE [Suspect]
     Indication: HODGKIN'S DISEASE
     Route: 065
     Dates: start: 20100118, end: 20100118
  6. MITOGUAZONE [Suspect]
     Route: 065
     Dates: start: 20100114, end: 20100114
  7. ETOPOSIDE [Suspect]
     Indication: HODGKIN'S DISEASE
     Route: 065
     Dates: start: 20100114, end: 20100116
  8. PARACETAMOL [Concomitant]
     Indication: DRUG USE FOR UNKNOWN INDICATION
     Route: 065
     Dates: start: 20091228, end: 20100113
  9. NALBUPHINE [Concomitant]
     Indication: DRUG USE FOR UNKNOWN INDICATION
     Route: 065
     Dates: start: 20091228, end: 20100113
  10. PHLOROGLUCINOL [Concomitant]
     Indication: DRUG USE FOR UNKNOWN INDICATION
     Route: 065
     Dates: start: 20091228, end: 20100113
  11. SPASFON [Concomitant]
     Indication: DRUG USE FOR UNKNOWN INDICATION
     Route: 065
     Dates: start: 20091228, end: 20100113
  12. METHYLPREDNISOLONE [Concomitant]
     Indication: DRUG USE FOR UNKNOWN INDICATION
     Route: 065
     Dates: start: 20100108
  13. ONDANSETRON [Concomitant]
     Indication: DRUG USE FOR UNKNOWN INDICATION
     Route: 065
     Dates: start: 20100114
  14. ALIZAPRIDE [Concomitant]
     Indication: DRUG USE FOR UNKNOWN INDICATION
     Route: 065
     Dates: start: 20100114
  15. HYDROXYZINE [Concomitant]
     Indication: DRUG USE FOR UNKNOWN INDICATION
     Route: 065
     Dates: start: 20100114
  16. OMEPRAZOLE [Concomitant]
     Indication: DRUG USE FOR UNKNOWN INDICATION
     Route: 065
     Dates: start: 20100114

REACTIONS (15)
  - ABDOMINAL PAIN [None]
  - ACCIDENTAL OVERDOSE [None]
  - ACUTE RESPIRATORY DISTRESS SYNDROME [None]
  - BONE MARROW FAILURE [None]
  - CANDIDA SEPSIS [None]
  - CONVULSION [None]
  - DRUG ADMINISTRATION ERROR [None]
  - FLATULENCE [None]
  - ILEUS [None]
  - INAPPROPRIATE ANTIDIURETIC HORMONE SECRETION [None]
  - JAUNDICE [None]
  - MUCOSAL INFLAMMATION [None]
  - NAUSEA [None]
  - NERVOUS SYSTEM DISORDER [None]
  - VOMITING [None]
